FAERS Safety Report 18767127 (Version 1)
Quarter: 2021Q1

REPORT INFORMATION
  Report Type: Spontaneous
  Country: US (occurrence: US)
  Receive Date: 20210120
  Receipt Date: 20210120
  Transmission Date: 20210419
  Serious: Yes (Other)
  Sender: FDA-Public Use
  Company Number: None

PATIENT
  Age: 53 Year
  Sex: Female

DRUGS (1)
  1. ESTRING [Suspect]
     Active Substance: ESTRADIOL
     Route: 067
     Dates: start: 20201202, end: 20201216

REACTIONS (2)
  - Uterine pain [None]
  - Burning sensation [None]

NARRATIVE: CASE EVENT DATE: 20201202
